FAERS Safety Report 19589659 (Version 1)
Quarter: 2021Q3

REPORT INFORMATION
  Report Type: Spontaneous
  Country: US (occurrence: US)
  Receive Date: 20210721
  Receipt Date: 20210721
  Transmission Date: 20211014
  Serious: Yes (Death, Other)
  Sender: FDA-Public Use
  Company Number: US-AMERICAN REGENT INC-2021001886

PATIENT
  Age: 68 Year
  Sex: Male

DRUGS (1)
  1. LIDOCAINE HCL INJECTION, USP (0625?25) [Suspect]
     Active Substance: LIDOCAINE HYDROCHLORIDE
     Indication: TRIGEMINAL NEURALGIA
     Dosage: 2 GRAM
     Route: 051
     Dates: end: 2019

REACTIONS (3)
  - Medication error [Fatal]
  - Cardiac arrest [Recovered/Resolved]
  - Incorrect route of product administration [Unknown]

NARRATIVE: CASE EVENT DATE: 2019
